FAERS Safety Report 17486909 (Version 1)
Quarter: 2020Q1

REPORT INFORMATION
  Report Type: Report from Study
  Country: JP (occurrence: JP)
  Receive Date: 20200303
  Receipt Date: 20200303
  Transmission Date: 20200409
  Serious: Yes (Hospitalization, Other)
  Sender: FDA-Public Use
  Company Number: JP-ROCHE-2558925

PATIENT
  Age: 52 Year
  Sex: Female
  Weight: 50 kg

DRUGS (45)
  1. PREDNISOLONE. [Concomitant]
     Active Substance: PREDNISOLONE
     Route: 048
     Dates: start: 20171003, end: 20171115
  2. URSODEOXYCHOLIC ACID [Concomitant]
     Active Substance: URSODIOL
     Indication: HEPATIC FAILURE
     Route: 048
  3. ESOMEPRAZOLE. [Concomitant]
     Active Substance: ESOMEPRAZOLE MAGNESIUM
     Route: 048
     Dates: start: 20170907
  4. CICLOSPORIN [Suspect]
     Active Substance: CYCLOSPORINE
     Route: 048
     Dates: start: 20090915, end: 20100726
  5. TACROLIMUS. [Suspect]
     Active Substance: TACROLIMUS
     Route: 048
     Dates: start: 20180313
  6. SOL-MELCORT [Concomitant]
     Active Substance: METHYLPREDNISOLONE SODIUM SUCCINATE
     Indication: PROPHYLAXIS AGAINST TRANSPLANT REJECTION
     Route: 042
     Dates: start: 20170911, end: 20170914
  7. PREDNISOLONE. [Concomitant]
     Active Substance: PREDNISOLONE
     Indication: PROPHYLAXIS AGAINST TRANSPLANT REJECTION
     Route: 048
     Dates: start: 20170906, end: 20170910
  8. CICLOSPORIN [Suspect]
     Active Substance: CYCLOSPORINE
     Indication: PROPHYLAXIS AGAINST TRANSPLANT REJECTION
     Route: 048
     Dates: start: 20050803, end: 20060831
  9. CICLOSPORIN [Suspect]
     Active Substance: CYCLOSPORINE
     Route: 048
     Dates: start: 20070814, end: 20080818
  10. REMINARON [Concomitant]
     Active Substance: GABEXATE MESYLATE
     Indication: PROPHYLAXIS AGAINST TRANSPLANT REJECTION
     Route: 042
     Dates: start: 20170911, end: 20170920
  11. CICLOSPORIN [Suspect]
     Active Substance: CYCLOSPORINE
     Route: 048
     Dates: start: 20080819, end: 20090914
  12. CICLOSPORIN [Suspect]
     Active Substance: CYCLOSPORINE
     Route: 048
     Dates: start: 20170901, end: 20170905
  13. TACROLIMUS. [Suspect]
     Active Substance: TACROLIMUS
     Route: 048
     Dates: start: 20171205, end: 20180129
  14. RESTAMIN [DIPHENHYDRAMINE] [Concomitant]
     Route: 048
     Dates: start: 2017, end: 2017
  15. SOL-MELCORT [Concomitant]
     Active Substance: METHYLPREDNISOLONE SODIUM SUCCINATE
     Route: 042
     Dates: start: 20170915, end: 20170918
  16. ACETAMINOPHEN. [Concomitant]
     Active Substance: ACETAMINOPHEN
     Route: 048
     Dates: start: 2017, end: 2017
  17. LIVACT [ISOLEUCINE;LEUCINE;VALINE] [Concomitant]
     Indication: HEPATIC FAILURE
     Dosage: 3 DF
     Route: 048
  18. HALIZON [Concomitant]
     Active Substance: AMPHOTERICIN B
     Route: 048
     Dates: start: 20170904, end: 20171204
  19. CICLOSPORIN [Suspect]
     Active Substance: CYCLOSPORINE
     Route: 048
     Dates: start: 20060901, end: 20070813
  20. CICLOSPORIN [Suspect]
     Active Substance: CYCLOSPORINE
     Route: 048
     Dates: start: 20170908, end: 20170908
  21. TACROLIMUS. [Suspect]
     Active Substance: TACROLIMUS
     Route: 048
     Dates: start: 20171014, end: 20171204
  22. SOL-MELCORT [Concomitant]
     Active Substance: METHYLPREDNISOLONE SODIUM SUCCINATE
     Route: 042
     Dates: start: 20170911, end: 20170918
  23. FLAGYL [Concomitant]
     Active Substance: METRONIDAZOLE\METRONIDAZOLE HYDROCHLORIDE
     Route: 048
     Dates: start: 20170908, end: 20170911
  24. CICLOSPORIN [Suspect]
     Active Substance: CYCLOSPORINE
     Route: 048
     Dates: start: 20170724, end: 20170820
  25. CICLOSPORIN [Suspect]
     Active Substance: CYCLOSPORINE
     Route: 048
     Dates: start: 20170906, end: 20170907
  26. TACROLIMUS. [Suspect]
     Active Substance: TACROLIMUS
     Route: 048
     Dates: start: 20170909, end: 20170911
  27. TACROLIMUS. [Suspect]
     Active Substance: TACROLIMUS
     Route: 048
     Dates: start: 20170922, end: 20171013
  28. ALPROSTADIL ALFADEX [Concomitant]
     Active Substance: ALPROSTADIL ALFADEX
     Indication: PROPHYLAXIS AGAINST TRANSPLANT REJECTION
     Route: 042
     Dates: start: 20170911, end: 20170924
  29. PREDNISOLONE. [Concomitant]
     Active Substance: PREDNISOLONE
     Route: 048
     Dates: start: 20170919, end: 20171002
  30. FUNGIZONE [Concomitant]
     Active Substance: AMPHOTERICIN B
     Route: 048
     Dates: start: 20170904, end: 20171019
  31. CICLOSPORIN [Suspect]
     Active Substance: CYCLOSPORINE
     Route: 048
     Dates: start: 20160823, end: 20170723
  32. CICLOSPORIN [Suspect]
     Active Substance: CYCLOSPORINE
     Route: 048
     Dates: start: 20170821, end: 20170831
  33. TACROLIMUS. [Suspect]
     Active Substance: TACROLIMUS
     Indication: PROPHYLAXIS AGAINST TRANSPLANT REJECTION
     Route: 048
     Dates: start: 20050418, end: 20050803
  34. TACROLIMUS. [Suspect]
     Active Substance: TACROLIMUS
     Route: 048
     Dates: start: 20180130, end: 20180312
  35. BREDININ [Suspect]
     Active Substance: MIZORIBINE
     Indication: PROPHYLAXIS AGAINST TRANSPLANT REJECTION
     Route: 048
     Dates: start: 20050418
  36. PREDNISOLONE. [Concomitant]
     Active Substance: PREDNISOLONE
     Route: 048
     Dates: start: 20171116, end: 20180210
  37. PREDNISOLONE. [Concomitant]
     Active Substance: PREDNISOLONE
     Route: 048
     Dates: start: 20180211, end: 20180219
  38. RITUXIMAB. [Suspect]
     Active Substance: RITUXIMAB
     Indication: PROPHYLAXIS AGAINST TRANSPLANT REJECTION
     Route: 041
     Dates: start: 2017, end: 2017
  39. TACROLIMUS. [Suspect]
     Active Substance: TACROLIMUS
     Route: 048
     Dates: start: 20170912, end: 20170921
  40. DIPHENHYDRAMINE HYDROCHLORIDE. [Concomitant]
     Active Substance: DIPHENHYDRAMINE HYDROCHLORIDE
  41. KANAMYCIN [Concomitant]
     Active Substance: KANAMYCIN A SULFATE
     Route: 048
     Dates: start: 20170908, end: 20170911
  42. CICLOSPORIN [Suspect]
     Active Substance: CYCLOSPORINE
     Route: 048
     Dates: start: 20100727, end: 20140806
  43. CICLOSPORIN [Suspect]
     Active Substance: CYCLOSPORINE
     Route: 048
     Dates: start: 20140807, end: 20160822
  44. CICLOSPORIN [Suspect]
     Active Substance: CYCLOSPORINE
     Route: 048
     Dates: start: 20170909, end: 20170911
  45. PREDONINE [Concomitant]
     Active Substance: PREDNISOLONE
     Indication: PROPHYLAXIS AGAINST TRANSPLANT REJECTION
     Route: 048
     Dates: start: 20100921, end: 20170905

REACTIONS (4)
  - Splenic artery aneurysm [Recovering/Resolving]
  - Vascular pseudoaneurysm [Recovering/Resolving]
  - Cholangitis [Recovering/Resolving]
  - Cytomegalovirus infection [Recovering/Resolving]

NARRATIVE: CASE EVENT DATE: 20170921
